FAERS Safety Report 12540181 (Version 1)
Quarter: 2016Q3

REPORT INFORMATION
  Report Type: Spontaneous
  Country: US (occurrence: US)
  Receive Date: 20160708
  Receipt Date: 20160708
  Transmission Date: 20161109
  Serious: No
  Sender: FDA-Public Use
  Company Number: US-ABBVIE-16P-163-1601732-00

PATIENT
  Age: 54 Year
  Sex: Male

DRUGS (1)
  1. DUOPA [Suspect]
     Active Substance: CARBIDOPA\LEVODOPA
     Indication: PARKINSON^S DISEASE
     Route: 050
     Dates: start: 20151201, end: 2016

REACTIONS (2)
  - Dyskinesia [Unknown]
  - Compulsions [Unknown]

NARRATIVE: CASE EVENT DATE: 201512
